FAERS Safety Report 7329561-X (Version None)
Quarter: 2011Q1

REPORT INFORMATION
  Report Type: 
  Country: None (occurrence: None)
  Receive Date: 20110303
  Receipt Date: 20110224
  Transmission Date: 20110831
  Serious: Yes (Life-Threatening, Hospitalization, Other)
  Sender: FDA-Public Use
  Company Number: US-ROXANE LABORATORIES, INC.-2011-RO-00229RO

PATIENT
  Age: 36 Year
  Sex: Female

DRUGS (3)
  1. PREDNISONE [Suspect]
     Indication: SYSTEMIC LUPUS ERYTHEMATOSUS
  2. HYDROXYCHLOROQUINE [Suspect]
     Indication: SYSTEMIC LUPUS ERYTHEMATOSUS
  3. DROTRECOGIN ALFA [Suspect]

REACTIONS (8)
  - PASTEURELLA INFECTION [None]
  - SEPSIS [None]
  - CIRCULATORY COLLAPSE [None]
  - PERITONITIS [None]
  - RESPIRATORY FAILURE [None]
  - BACTERAEMIA [None]
  - GASTROINTESTINAL HAEMORRHAGE [None]
  - PERIPHERAL ISCHAEMIA [None]
